FAERS Safety Report 21742503 (Version 1)
Quarter: 2022Q4

REPORT INFORMATION
  Report Type: Report from Study
  Country: US (occurrence: US)
  Receive Date: 20221216
  Receipt Date: 20221216
  Transmission Date: 20230112
  Serious: No
  Sender: FDA-Public Use
  Company Number: US-ABBVIE-4198848

PATIENT
  Sex: Female

DRUGS (4)
  1. HUMIRA [Suspect]
     Active Substance: ADALIMUMAB
     Indication: Rheumatoid arthritis
     Route: 058
     Dates: start: 20220602
  2. Pfizer/BioNTech Covid-19 vaccination [Concomitant]
     Indication: COVID-19 immunisation
     Dosage: 1 IN ONCE.?FIRST DOSE
     Route: 030
     Dates: start: 20210302, end: 20210302
  3. Pfizer/BioNTech Covid-19 vaccination [Concomitant]
     Indication: COVID-19 immunisation
     Dosage: 1 IN ONCE.?SECOND DOSE
     Route: 030
     Dates: start: 20210331, end: 20210331
  4. MODERNA COVID-19 VACCINE [Concomitant]
     Active Substance: ELASOMERAN
     Indication: COVID-19 immunisation
     Dosage: 1 IN ONCE.?BOOSTER DOSE
     Route: 030
     Dates: start: 20211031, end: 20211031

REACTIONS (5)
  - Muscle fatigue [Unknown]
  - Cough [Unknown]
  - Arthralgia [Unknown]
  - Alopecia [Unknown]
  - Pain [Unknown]
